FAERS Safety Report 19734616 (Version 1)
Quarter: 2021Q3

REPORT INFORMATION
  Report Type: Spontaneous
  Country: ES (occurrence: ES)
  Receive Date: 20210824
  Receipt Date: 20210824
  Transmission Date: 20211014
  Serious: Yes (Hospitalization, Other)
  Sender: FDA-Public Use
  Company Number: ES-LUPIN PHARMACEUTICALS INC.-2021-15386

PATIENT
  Age: 63 Year
  Sex: Male

DRUGS (4)
  1. METHYLPREDNISOLONE. [Suspect]
     Active Substance: METHYLPREDNISOLONE
     Indication: MYASTHENIC SYNDROME
     Dosage: 1 MILLIGRAM/KILOGRAM, QD
     Route: 065
  2. METHYLPREDNISOLONE. [Suspect]
     Active Substance: METHYLPREDNISOLONE
     Indication: MYOSITIS
     Dosage: 1 GRAM (THREE PULSES)
     Route: 065
  3. METHYLPREDNISOLONE. [Suspect]
     Active Substance: METHYLPREDNISOLONE
     Indication: MYOCARDITIS
     Dosage: 2 MILLIGRAM/KILOGRAM, QD
     Route: 065
  4. PEMBROLIZUMAB. [Suspect]
     Active Substance: PEMBROLIZUMAB
     Indication: LIPOSARCOMA METASTATIC
     Dosage: UNK
     Route: 065

REACTIONS (3)
  - Myasthenic syndrome [Recovering/Resolving]
  - Rebound effect [Recovering/Resolving]
  - Condition aggravated [Recovering/Resolving]
